FAERS Safety Report 16715813 (Version 1)
Quarter: 2019Q4

REPORT INFORMATION
  Report Type: Spontaneous
  Country: US (occurrence: US)
  Receive Date: 20190817
  Receipt Date: 20190817
  Transmission Date: 20200122
  Serious: Yes (Life-Threatening, Other)
  Sender: FDA-Public Use
  Company Number: None

PATIENT
  Age: 49 Year
  Sex: Female

DRUGS (4)
  1. RADIATION [Concomitant]
     Active Substance: RADIATION THERAPY
  2. CHEMOTHERAPY [Concomitant]
     Active Substance: UNSPECIFIED INGREDIENT
  3. KEYTRUDA [Suspect]
     Active Substance: PEMBROLIZUMAB
     Indication: NON-SMALL CELL LUNG CANCER METASTATIC
     Route: 042
     Dates: start: 20190401, end: 20190731
  4. PORT [Concomitant]

REACTIONS (1)
  - Pericardial effusion [None]

NARRATIVE: CASE EVENT DATE: 20190701
